FAERS Safety Report 7751077-7 (Version None)
Quarter: 2011Q3

REPORT INFORMATION
  Report Type: 
  Country: None (occurrence: None)
  Receive Date: 20110912
  Receipt Date: 20110830
  Transmission Date: 20111222
  Serious: Yes (Other)
  Sender: FDA-Public Use
  Company Number: 2011PL000044

PATIENT
  Age: 47 Year
  Sex: Male
  Weight: 103.1 kg

DRUGS (8)
  1. CYCLOPHOSPHAMIDE [Suspect]
     Indication: MALIGNANT MELANOMA
     Dosage: 5580 MG;QD
     Dates: start: 20090720, end: 20100518
  2. FLUDARABINE PHOSPHATE [Suspect]
     Indication: MALIGNANT MELANOMA
     Dosage: 50 MG
     Dates: start: 20090722, end: 20100523
  3. ALL OTHER THERAPEUTIC PRODUCTS [Suspect]
     Indication: MALIGNANT MELANOMA
     Dosage: 6.0 X10^9;X1
     Dates: start: 20090727
  4. BACTRIM DS [Concomitant]
  5. ACYCLOVIR [Concomitant]
  6. KEPPRA [Concomitant]
  7. PROLEUKIN [Suspect]
     Indication: MALIGNANT MELANOMA
     Dosage: 91.8 X10^6
     Dates: start: 20090727, end: 20100528
  8. FILGRASTIM [Concomitant]

REACTIONS (9)
  - BRAIN STEM SYNDROME [None]
  - NEUTROPENIA [None]
  - METASTATIC MALIGNANT MELANOMA [None]
  - GRANULOCYTOPENIA [None]
  - PLASMA CELLS INCREASED [None]
  - APHERESIS [None]
  - WHITE BLOOD CELL COUNT DECREASED [None]
  - NEOPLASM PROGRESSION [None]
  - BLOOD IRON INCREASED [None]
